FAERS Safety Report 5570106-2 (Version None)
Quarter: 2007Q4

REPORT INFORMATION
  Report Type: 
  Country: None (occurrence: None)
  Receive Date: 20071220
  Receipt Date: 20071218
  Transmission Date: 20080405
  Serious: Yes (Other)
  Sender: FDA-Public Use
  Company Number: GB-WYE-G00746707

PATIENT
  Sex: Male

DRUGS (7)
  1. ANADIN IBUPROFEN [Suspect]
     Indication: DEPRESSION
     Dosage: UNKNOWN
     Dates: start: 20020820
  2. LOFEPRAMINE [Suspect]
     Dosage: UNKNOWN
  3. COCAINE [Concomitant]
     Dosage: UNKNOWN
  4. SEROXAT [Suspect]
     Indication: PHOBIA
     Dates: start: 19990901, end: 20021201
  5. METHYLENEDIOXYMETHAMFETAMINE [Concomitant]
     Dosage: UNKNOWN
  6. CODEINE [Suspect]
     Dosage: UNKNOWN
     Dates: start: 20020820
  7. NUROFEN [Suspect]
     Dosage: UNKNOWN
     Dates: start: 20020820

REACTIONS (8)
  - AGGRESSION [None]
  - CONDITION AGGRAVATED [None]
  - CONSTIPATION [None]
  - DRUG INEFFECTIVE [None]
  - DRY MOUTH [None]
  - SOCIAL PHOBIA [None]
  - SUICIDE ATTEMPT [None]
  - VISION BLURRED [None]
